FAERS Safety Report 7645635-8 (Version None)
Quarter: 2011Q3

REPORT INFORMATION
  Report Type: 
  Country: None (occurrence: None)
  Receive Date: 20110729
  Receipt Date: 20110721
  Transmission Date: 20111222
  Serious: Yes (Other)
  Sender: FDA-Public Use
  Company Number: PHHY2011KR67380

PATIENT
  Age: 55 Year
  Sex: Female

DRUGS (1)
  1. WARFARIN SODIUM [Suspect]
     Dosage: UNK

REACTIONS (3)
  - GASTRIC HAEMORRHAGE [None]
  - ABDOMINAL PAIN [None]
  - PYELOCALIECTASIS [None]
